FAERS Safety Report 17305313 (Version 1)
Quarter: 2020Q1

REPORT INFORMATION
  Report Type: Report from Study
  Country: DE (occurrence: DE)
  Receive Date: 20200123
  Receipt Date: 20200123
  Transmission Date: 20200409
  Serious: Yes (Other)
  Sender: FDA-Public Use
  Company Number: DE-ASTRAZENECA-2020SE03516

PATIENT
  Sex: Female

DRUGS (9)
  1. COLESTYRAMIN [Suspect]
     Active Substance: CHOLESTYRAMINE
     Route: 065
  2. BUDESONIDE. [Suspect]
     Active Substance: BUDESONIDE
     Route: 055
  3. PREDNISOLON [Suspect]
     Active Substance: PREDNISOLONE
     Route: 065
  4. PANCREATIN [Suspect]
     Active Substance: PANCRELIPASE
     Route: 065
  5. RANITIDIN [Suspect]
     Active Substance: RANITIDINE HYDROCHLORIDE
     Route: 065
  6. SALBUTAMOL [Suspect]
     Active Substance: ALBUTEROL
     Route: 065
  7. ONDANSETRON [Suspect]
     Active Substance: ONDANSETRON
     Route: 065
  8. PARACETAMOL [Suspect]
     Active Substance: ACETAMINOPHEN
     Indication: PAIN
     Dosage: 500-1000 MG/D
     Route: 065
  9. MORPHIN [Suspect]
     Active Substance: MORPHINE
     Route: 065

REACTIONS (2)
  - Exposure during pregnancy [Unknown]
  - Stillbirth [Unknown]
